FAERS Safety Report 4314434-7 (Version None)
Quarter: 2004Q1

REPORT INFORMATION
  Report Type: 
  Country: None (occurrence: None)
  Receive Date: 20040308
  Receipt Date: 20040224
  Transmission Date: 20041129
  Serious: Yes (Other)
  Sender: FDA-Public Use
  Company Number: DEU-2004-0000756

PATIENT
  Age: 60 Year
  Sex: Female

DRUGS (8)
  1. MST(MORPHINE SULFATE)UNKNOWN [Suspect]
     Indication: BACK PAIN
     Dosage: 50 MG, DAILY, ORAL
     Route: 048
     Dates: start: 20040102, end: 20040130
  2. ZOFRAN [Concomitant]
  3. TRYPTIZOL (AMITRIPTYLINE HYDROCHLORIDE) [Concomitant]
  4. HOVA (VALERIAN ROOT, HUMULUS LUPULUS EXTRACT) [Concomitant]
  5. BECOZYME (VITAMINS NOS, POTASSIUM IODIDE, SILICIC ACID, MAGNESIUM CARB [Concomitant]
  6. BENERVA (THIAMINE HYDROCHLORIDE) [Concomitant]
  7. NSAID'S [Concomitant]
  8. HOMEOPATIC PREPARATION [Concomitant]

REACTIONS (4)
  - BLISTER [None]
  - DERMATITIS [None]
  - ERYTHEMA MULTIFORME [None]
  - RASH MACULO-PAPULAR [None]
